FAERS Safety Report 21650953 (Version 1)
Quarter: 2022Q4

REPORT INFORMATION
  Report Type: Report from Study
  Country: CO (occurrence: CO)
  Receive Date: 20221128
  Receipt Date: 20221128
  Transmission Date: 20230113
  Serious: Yes (Disabling, Other)
  Sender: FDA-Public Use
  Company Number: CO-BRISTOL-MYERS SQUIBB COMPANY-2022-026817

PATIENT
  Age: 47 Year
  Sex: Male
  Weight: 77 kg

DRUGS (2)
  1. OPDIVO [Suspect]
     Active Substance: NIVOLUMAB
     Indication: Renal cancer
     Route: 042
     Dates: start: 20210112
  2. OPDIVO [Suspect]
     Active Substance: NIVOLUMAB
     Indication: Renal cancer stage I
     Route: 042
     Dates: start: 20220112

REACTIONS (8)
  - Cancer pain [Recovering/Resolving]
  - Spinal fracture [Unknown]
  - Sciatica [Unknown]
  - Gait inability [Unknown]
  - Off label use [Unknown]
  - Pyrexia [Recovering/Resolving]
  - Spinal disorder [Recovering/Resolving]
  - Angiopathy [Unknown]

NARRATIVE: CASE EVENT DATE: 20220319
